FAERS Safety Report 5996358-2 (Version None)
Quarter: 2008Q4

REPORT INFORMATION
  Report Type: 
  Country: None (occurrence: None)
  Receive Date: 20081212
  Receipt Date: 20081014
  Transmission Date: 20090506
  Serious: No
  Sender: FDA-Public Use
  Company Number: US-ABBOTT-08P-163-0481877-00

PATIENT
  Sex: Female
  Weight: 72.64 kg

DRUGS (8)
  1. HUMIRA [Suspect]
     Indication: DRUG USE FOR UNKNOWN INDICATION
     Dates: start: 20050101
  2. STEROID INJECTION [Suspect]
     Indication: BACK PAIN
     Route: 030
  3. RISEDRONATE SODIUM [Suspect]
     Indication: BONE DISORDER
     Dates: start: 20050101, end: 20060101
  4. PREDNISONE TAB [Concomitant]
     Indication: RHEUMATOID ARTHRITIS
     Route: 048
     Dates: start: 20030101
  5. TRAVATAN EYE DROPS [Concomitant]
     Indication: GLAUCOMA
  6. VITAMINS [Concomitant]
     Indication: VITAMIN SUPPLEMENTATION
     Route: 048
  7. CENTRUM SILVER [Concomitant]
     Indication: VITAMIN SUPPLEMENTATION
     Route: 048
  8. FOLIC ACID [Concomitant]
     Indication: VITAMIN SUPPLEMENTATION
     Route: 048

REACTIONS (6)
  - BACK PAIN [None]
  - CANDIDIASIS [None]
  - DYSPNOEA [None]
  - HYPERHIDROSIS [None]
  - MUSCULAR WEAKNESS [None]
  - PARAESTHESIA [None]
